FAERS Safety Report 11821086 (Version 1)
Quarter: 2015Q4

REPORT INFORMATION
  Report Type: Report from Study
  Country: US (occurrence: US)
  Receive Date: 20151210
  Receipt Date: 20151210
  Transmission Date: 20160305
  Serious: Yes (Other)
  Sender: FDA-Public Use
  Company Number: US-ROCHE-1673364

PATIENT
  Sex: Female
  Weight: 59.96 kg

DRUGS (6)
  1. DESMOPRESSIN [Concomitant]
     Active Substance: DESMOPRESSIN
     Dosage: DOSE: 2 AND 1/2 TABLETS TWICE A DAY
     Route: 048
  2. LEVOTHYROXINE. [Concomitant]
     Active Substance: LEVOTHYROXINE
     Indication: HYPOTHYROIDISM
     Route: 065
  3. MEDROXYPROGESTERONE [Concomitant]
     Active Substance: MEDROXYPROGESTERONE
  4. MINIVELLE [Concomitant]
     Active Substance: ESTRADIOL
  5. NUTROPIN AQ [Suspect]
     Active Substance: SOMATROPIN
     Indication: HYPOPITUITARISM
     Route: 058
  6. HYDROCORTISONE. [Concomitant]
     Active Substance: HYDROCORTISONE

REACTIONS (11)
  - Dyspnoea [Unknown]
  - Fatigue [Unknown]
  - Menstruation irregular [Unknown]
  - Memory impairment [Unknown]
  - Feeling jittery [Unknown]
  - Anxiety [Unknown]
  - Dysuria [Unknown]
  - Palpitations [Unknown]
  - Fractured coccyx [Unknown]
  - Stress [Unknown]
  - Weight increased [Unknown]
